FAERS Safety Report 11294614 (Version 1)
Quarter: 2015Q2

REPORT INFORMATION
  Report Type: Spontaneous
  Country: US (occurrence: None)
  Receive Date: 20150623
  Receipt Date: 20150623
  Transmission Date: 20150821
  Serious: Yes (Other)
  Sender: FDA-Public Use
  Company Number: RB-66828-2014

PATIENT
  Age: 51 Year
  Sex: Female

DRUGS (1)
  1. GUAIFENESIN AND DEXTROMETHORPHAN [Suspect]
     Active Substance: DEXTROMETHORPHAN\GUAIFENESIN
     Indication: PRODUCT USED FOR UNKNOWN INDICATION
     Dosage: QD, TOOK LAST ON 07-JUN-2014. ORAL)
     Dates: start: 20140606

REACTIONS (3)
  - Wheezing [None]
  - Pruritus [None]
  - Agitation [None]

NARRATIVE: CASE EVENT DATE: 20140606
